FAERS Safety Report 8822978 (Version 1)
Quarter: 2012Q4

REPORT INFORMATION
  Report Type: 
  Country: NO (occurrence: NO)
  Receive Date: 20121003
  Receipt Date: 20121003
  Transmission Date: 20130627
  Serious: Yes (Disabling, Other)
  Sender: FDA-Public Use
  Company Number: NO-BRISTOL-MYERS SQUIBB COMPANY-16980120

PATIENT
  Sex: Male

DRUGS (5)
  1. ETOPOSIDE [Suspect]
     Indication: TESTIS CANCER
  2. IFOSFAMIDE [Suspect]
     Indication: TESTIS CANCER
  3. CISPLATIN [Suspect]
     Indication: TESTIS CANCER
  4. G-CSF [Concomitant]
  5. ALLOPURINOL [Concomitant]
     Dosage: 600 mg, UNK

REACTIONS (12)
  - Teratoma [Recovered/Resolved]
  - Fatigue [Recovered/Resolved with Sequelae]
  - Enterocolitis [Recovered/Resolved]
  - Neuropathy peripheral [Recovered/Resolved with Sequelae]
  - Metastasis [Recovered/Resolved]
  - Disturbance in attention [Recovered/Resolved with Sequelae]
  - Tinnitus [Recovered/Resolved with Sequelae]
  - Diarrhoea [Recovered/Resolved with Sequelae]
  - Bone marrow failure [Recovered/Resolved with Sequelae]
  - Pyrexia [Recovered/Resolved with Sequelae]
  - Nausea [Recovered/Resolved with Sequelae]
  - Vomiting [Recovered/Resolved with Sequelae]
